FAERS Safety Report 18723918 (Version 4)
Quarter: 2021Q2

REPORT INFORMATION
  Report Type: Report from Study
  Country: None (occurrence: US)
  Receive Date: 20210111
  Receipt Date: 20210419
  Transmission Date: 20210717
  Serious: Yes (Other)
  Sender: FDA-Public Use
  Company Number: US-ABBVIE-21K-163-3721827-00

PATIENT
  Sex: Female

DRUGS (2)
  1. RINVOQ [Suspect]
     Active Substance: UPADACITINIB
     Dosage: TAKE ONE TABLET 15 MILLIGRAM BY MOUTH ONCE DAILY
     Route: 048
     Dates: start: 20201221, end: 202101
  2. RINVOQ [Suspect]
     Active Substance: UPADACITINIB
     Indication: RHEUMATOID ARTHRITIS
     Dosage: TAKE ONE TABLET 15 MILLIGRAM BY MOUTH ONCE DAILY
     Route: 048
     Dates: end: 202011

REACTIONS (2)
  - Rheumatoid arthritis [Recovering/Resolving]
  - Optic nerve disorder [Unknown]
